FAERS Safety Report 12739448 (Version 1)
Quarter: 2016Q3

REPORT INFORMATION
  Report Type: Spontaneous
  Country: US (occurrence: US)
  Receive Date: 20160913
  Receipt Date: 20160913
  Transmission Date: 20161109
  Serious: No
  Sender: FDA-Public Use
  Company Number: US-RECKITT BENCKISER HEALTHCARE INT LIMITED-RB-83960-2016

PATIENT
  Age: 59 Year
  Sex: Female

DRUGS (2)
  1. MUCINEX MAXIMUM STRENGTH [Suspect]
     Active Substance: GUAIFENESIN
     Indication: INFECTION PROPHYLAXIS
     Dosage: 2400 MG, BID
     Route: 065
     Dates: start: 201603
  2. MUCINEX [Suspect]
     Active Substance: GUAIFENESIN
     Indication: INFECTION PROPHYLAXIS
     Dosage: 1200 MG, BID
     Route: 065

REACTIONS (4)
  - Accidental overdose [Recovered/Resolved]
  - Nausea [Recovered/Resolved]
  - Product use issue [Recovered/Resolved]
  - Headache [Recovered/Resolved]

NARRATIVE: CASE EVENT DATE: 201603
